FAERS Safety Report 20409578 (Version 1)
Quarter: 2022Q1

REPORT INFORMATION
  Report Type: Spontaneous
  Country: US (occurrence: US)
  Receive Date: 20220201
  Receipt Date: 20220201
  Transmission Date: 20220423
  Serious: Yes (Other)
  Sender: FDA-Public Use
  Company Number: US-GLAXOSMITHKLINE- US2022GSK015890

PATIENT
  Sex: Male

DRUGS (12)
  1. ZANTAC [Suspect]
     Active Substance: RANITIDINE HYDROCHLORIDE
     Indication: Product used for unknown indication
     Dosage: 300 MG, WE
     Route: 065
     Dates: start: 200701, end: 201912
  2. ZANTAC [Suspect]
     Active Substance: RANITIDINE HYDROCHLORIDE
     Dosage: MORE, WE
     Route: 065
     Dates: start: 200701, end: 201912
  3. ZANTAC [Suspect]
     Active Substance: RANITIDINE HYDROCHLORIDE
     Indication: Product used for unknown indication
     Dosage: 300 MG, WE
     Route: 065
     Dates: start: 200701, end: 201912
  4. ZANTAC [Suspect]
     Active Substance: RANITIDINE HYDROCHLORIDE
     Dosage: MORE, WE
     Route: 065
     Dates: start: 200701, end: 201912
  5. RANITIDINE HYDROCHLORIDE [Suspect]
     Active Substance: RANITIDINE HYDROCHLORIDE
     Indication: Product used for unknown indication
     Dosage: 300 MG, WE
     Route: 065
     Dates: start: 200701, end: 201912
  6. RANITIDINE HYDROCHLORIDE [Suspect]
     Active Substance: RANITIDINE HYDROCHLORIDE
     Dosage: MORE, WE
     Route: 065
     Dates: start: 200701, end: 201912
  7. RANITIDINE HYDROCHLORIDE [Suspect]
     Active Substance: RANITIDINE HYDROCHLORIDE
     Indication: Product used for unknown indication
     Dosage: 300 MG, WE
     Route: 065
     Dates: start: 200701, end: 201912
  8. RANITIDINE HYDROCHLORIDE [Suspect]
     Active Substance: RANITIDINE HYDROCHLORIDE
     Dosage: MORE, WE
     Route: 065
     Dates: start: 200701, end: 201912
  9. RANITIDINE HYDROCHLORIDE [Suspect]
     Active Substance: RANITIDINE HYDROCHLORIDE
     Indication: Product used for unknown indication
     Dosage: 300 MG, WE
     Route: 065
     Dates: start: 200701, end: 201912
  10. RANITIDINE HYDROCHLORIDE [Suspect]
     Active Substance: RANITIDINE HYDROCHLORIDE
     Dosage: MORE, WE
     Route: 065
     Dates: start: 200701, end: 201912
  11. RANITIDINE [Suspect]
     Active Substance: RANITIDINE
     Indication: Product used for unknown indication
     Dosage: 300 MG, WE
     Route: 065
     Dates: start: 200701, end: 201912
  12. RANITIDINE [Suspect]
     Active Substance: RANITIDINE
     Dosage: MORE, WE
     Route: 065
     Dates: start: 200701, end: 201912

REACTIONS (1)
  - Colorectal cancer [Unknown]
